FAERS Safety Report 5261053-4 (Version None)
Quarter: 2007Q1

REPORT INFORMATION
  Report Type: 
  Country: None (occurrence: None)
  Receive Date: 20070309
  Receipt Date: 20070228
  Transmission Date: 20070707
  Serious: Yes (Other)
  Sender: FDA-Public Use
  Company Number: JP-ELI_LILLY_AND_COMPANY-JP200703000307

PATIENT
  Age: 60 Year
  Sex: Male

DRUGS (2)
  1. GEMZAR [Suspect]
     Indication: MALIGNANT NEOPLASM OF RENAL PELVIS
     Dosage: 1000 MG/M2, OTHER
     Route: 042
  2. CISPLATIN [Concomitant]
     Indication: MALIGNANT NEOPLASM OF RENAL PELVIS
     Dosage: 70 MG/M2, UNK
     Route: 042

REACTIONS (2)
  - GASTROINTESTINAL DISORDER [None]
  - PLATELET COUNT DECREASED [None]
